FAERS Safety Report 7807206-X (Version None)
Quarter: 2011Q4

REPORT INFORMATION
  Report Type: 
  Country: None (occurrence: None)
  Receive Date: 20111011
  Receipt Date: 20111005
  Transmission Date: 20120403
  Serious: No
  Sender: FDA-Public Use
  Company Number: US-B.I. PHARMACEUTICALS,INC./RIDGEFIELD-2011-BP-22924BP

PATIENT
  Sex: Male

DRUGS (16)
  1. OXYCODONE HCL [Concomitant]
     Indication: ARTHRITIS
  2. PRADAXA [Suspect]
     Dosage: 300 MG
     Route: 048
     Dates: end: 20111002
  3. POTASSIUM [Concomitant]
  4. GLUCOSAMINE CHONDROITIN [Concomitant]
     Indication: ARTHRITIS
  5. COLACE [Concomitant]
     Indication: CONSTIPATION
     Route: 048
  6. TYLENOL-500 [Concomitant]
  7. CELEBREX [Concomitant]
     Indication: ARTHRITIS
     Route: 048
  8. LISINOPRIL [Concomitant]
     Indication: HYPERTENSION
  9. METOPROLOL TARTRATE [Concomitant]
     Indication: HYPERTENSION
  10. SIMVASTATIN [Concomitant]
     Indication: BLOOD CHOLESTEROL INCREASED
  11. NAPROXEN (ALEVE) [Concomitant]
     Indication: ARTHRITIS
     Route: 048
  12. WARFARIN SODIUM [Concomitant]
     Dosage: 3.5 MG
     Route: 048
  13. PRADAXA [Suspect]
     Indication: ATRIAL FIBRILLATION
     Dosage: 300 MG
     Route: 048
     Dates: start: 20110801
  14. LASIX [Concomitant]
  15. HYDROCODONE BITARTRATE [Concomitant]
     Indication: ARTHRITIS
  16. TERAZOSIN HCL [Concomitant]
     Indication: BENIGN PROSTATIC HYPERPLASIA

REACTIONS (2)
  - INSOMNIA [None]
  - ABDOMINAL PAIN UPPER [None]
